FAERS Safety Report 5297809-1 (Version None)
Quarter: 2007Q2

REPORT INFORMATION
  Report Type: 
  Country: None (occurrence: None)
  Receive Date: 20070416
  Receipt Date: 20070309
  Transmission Date: 20071010
  Serious: Yes (Other)
  Sender: FDA-Public Use
  Company Number: CH-MERCK-0701CHE00016

PATIENT
  Age: 64 Year
  Sex: Male
  Weight: 98 kg

DRUGS (2)
  1. SPIRIVA [Concomitant]
     Indication: CHRONIC OBSTRUCTIVE PULMONARY DISEASE
     Route: 065
     Dates: start: 20060301
  2. SINGULAIR [Suspect]
     Indication: CHRONIC OBSTRUCTIVE PULMONARY DISEASE
     Route: 048
     Dates: start: 20061001, end: 20061201

REACTIONS (3)
  - ATRIAL FIBRILLATION [None]
  - PALPITATIONS [None]
  - PULSE ABNORMAL [None]
